FAERS Safety Report 8521156-5 (Version None)
Quarter: 2012Q3

REPORT INFORMATION
  Report Type: 
  Country: None (occurrence: None)
  Receive Date: 20120719
  Receipt Date: 20120709
  Transmission Date: 20120928
  Serious: Yes (Other)
  Sender: FDA-Public Use
  Company Number: US-ELI_LILLY_AND_COMPANY-US201207003618

PATIENT
  Sex: Female

DRUGS (4)
  1. SYNTHROID [Concomitant]
     Dosage: UNK
  2. CALCIUM [Concomitant]
     Dosage: UNK
  3. FORTEO [Suspect]
     Indication: OSTEOPOROSIS
     Dosage: 20 UG, QD
     Dates: start: 20120227, end: 20120628
  4. WELCHOL [Concomitant]
     Dosage: UNK

REACTIONS (2)
  - ENDOMETRIAL CANCER [None]
  - MENTAL IMPAIRMENT [None]
